FAERS Safety Report 12736859 (Version 1)
Quarter: 2016Q3

REPORT INFORMATION
  Report Type: Spontaneous
  Country: US (occurrence: US)
  Receive Date: 20160912
  Receipt Date: 20160912
  Transmission Date: 20161109
  Serious: No
  Sender: FDA-Public Use
  Company Number: US-PFIZER INC-2016420878

PATIENT
  Age: 89 Year
  Sex: Female

DRUGS (8)
  1. REGLAN [Suspect]
     Active Substance: METOCLOPRAMIDE HYDROCHLORIDE
     Dosage: UNK
  2. TERRAMYCIN [Suspect]
     Active Substance: OXYTETRACYCLINE\OXYTETRACYCLINE HYDROCHLORIDE
     Dosage: UNK
  3. TESSALON [Suspect]
     Active Substance: BENZONATATE
     Dosage: UNK
  4. AMIODARONE HCL [Suspect]
     Active Substance: AMIODARONE HYDROCHLORIDE
     Dosage: UNK
  5. RYTHMOL [Suspect]
     Active Substance: PROPAFENONE HYDROCHLORIDE
     Dosage: UNK
  6. CLINDAMYCIN HCL [Suspect]
     Active Substance: CLINDAMYCIN HYDROCHLORIDE
     Dosage: UNK
  7. ALREX [Suspect]
     Active Substance: LOTEPREDNOL ETABONATE
     Dosage: UNK
  8. ACROSTATIN [Suspect]
     Active Substance: ATORVASTATIN CALCIUM
     Dosage: UNK

REACTIONS (1)
  - Drug hypersensitivity [Unknown]
